FAERS Safety Report 9554964 (Version 2)
Quarter: 2013Q4

REPORT INFORMATION
  Report Type: Spontaneous
  Country: PL (occurrence: PL)
  Receive Date: 20130926
  Receipt Date: 20131004
  Transmission Date: 20140711
  Serious: Yes (Other)
  Sender: FDA-Public Use
  Company Number: PL-ROCHE-1277904

PATIENT
  Age: 54 Year
  Sex: Female
  Weight: 65 kg

DRUGS (4)
  1. ZELBORAF [Suspect]
     Indication: METASTATIC MALIGNANT MELANOMA
     Route: 048
     Dates: start: 20130821
  2. OXYCONTIN [Concomitant]
     Indication: ANALGESIC THERAPY
     Route: 048
     Dates: start: 20130821
  3. CLEXANE [Concomitant]
     Indication: ANTICOAGULANT THERAPY
     Route: 058
     Dates: start: 20130821
  4. KETONAL (POLAND) [Concomitant]
     Indication: ANALGESIC THERAPY
     Route: 048
     Dates: start: 20130821

REACTIONS (2)
  - Blister [Recovered/Resolved]
  - Local swelling [Recovered/Resolved]
